FAERS Safety Report 5044955-3 (Version None)
Quarter: 2006Q3

REPORT INFORMATION
  Report Type: 
  Country: None (occurrence: None)
  Receive Date: 20060705
  Receipt Date: 20060626
  Transmission Date: 20061208
  Serious: Yes (Other)
  Sender: FDA-Public Use
  Company Number: 200612126BCC

PATIENT
  Age: 74 Year
  Sex: Female
  Weight: 71.6683 kg

DRUGS (5)
  1. ALEVE (CAPLET) [Suspect]
     Indication: FIBROMYALGIA
     Dosage: SEE IAMGE
     Route: 048
     Dates: start: 19960101, end: 20050501
  2. ALEVE (CAPLET) [Suspect]
     Indication: FIBROMYALGIA
     Dosage: SEE IAMGE
     Route: 048
     Dates: start: 20050501, end: 20060513
  3. ALEVE (CAPLET) [Suspect]
     Indication: FIBROMYALGIA
     Dosage: SEE IAMGE
     Route: 048
     Dates: start: 20060519
  4. TAGAMET [Concomitant]
  5. TUMS [CALCIUM CARBONATE] [Concomitant]

REACTIONS (4)
  - ABDOMINAL PAIN UPPER [None]
  - GALLBLADDER DISORDER [None]
  - HELICOBACTER INFECTION [None]
  - ULCER [None]
